FAERS Safety Report 5087936-6 (Version None)
Quarter: 2006Q3

REPORT INFORMATION
  Report Type: 
  Country: None (occurrence: None)
  Receive Date: 20060821
  Receipt Date: 20060807
  Transmission Date: 20061208
  Serious: Yes (Death)
  Sender: FDA-Public Use
  Company Number: CLOF-10308

PATIENT
  Age: 18 Year
  Sex: Male
  Weight: 49.4 kg

DRUGS (10)
  1. CLOFARABINE [Suspect]
     Indication: PRECURSOR B-LYMPHOBLASTIC LYMPHOMA
     Dosage: 52 MG/M2 QD X 5 IV
     Route: 042
     Dates: start: 20060729, end: 20060802
  2. HYDROMORPHONE HCL [Concomitant]
  3. MULTIPLE ANTIBIOTICS [Concomitant]
  4. MULTIPLE ANTIFUNGALS [Concomitant]
  5. ETHOSUXIMIDE [Concomitant]
  6. SENNA [Concomitant]
  7. CEFEPIME [Concomitant]
  8. ACYCLOVIR [Concomitant]
  9. ABELCET [Concomitant]
  10. METRONIDAZOLE [Concomitant]

REACTIONS (11)
  - ABDOMINAL PAIN [None]
  - CARDIAC ARREST [None]
  - DEPRESSED LEVEL OF CONSCIOUSNESS [None]
  - GASTROINTESTINAL HAEMORRHAGE [None]
  - HYPOTENSION [None]
  - MENTAL IMPAIRMENT [None]
  - MENTAL STATUS CHANGES [None]
  - RESPIRATORY ARREST [None]
  - RESPIRATORY DISTRESS [None]
  - RESPIRATORY FAILURE [None]
  - TACHYCARDIA [None]
